FAERS Safety Report 5008900-9 (Version None)
Quarter: 2006Q2

REPORT INFORMATION
  Report Type: 
  Country: None (occurrence: None)
  Receive Date: 20060518
  Receipt Date: 20060504
  Transmission Date: 20061013
  Serious: Yes (Hospitalization)
  Sender: FDA-Public Use
  Company Number: S06-SWI-01793-01

PATIENT
  Age: 96 Year
  Sex: Female

DRUGS (8)
  1. CITALOPRAM HYDROBROMIDE [Suspect]
     Indication: AFFECTIVE DISORDER
     Dosage: 10 MG QD PO
     Route: 048
     Dates: start: 20040101, end: 20050118
  2. MAXIPIME [Suspect]
     Indication: PNEUMONIA BACTERIAL
     Dosage: 1000 MG QD IV
     Route: 042
     Dates: start: 20050113, end: 20050118
  3. ZYVOX [Suspect]
     Indication: PNEUMONIA BACTERIAL
     Dosage: 600 MG BID PO
     Route: 048
     Dates: start: 20050112, end: 20050122
  4. SPIRONOLACTONE [Concomitant]
  5. NADROPARIN [Concomitant]
  6. PARACETAMOL [Concomitant]
  7. GABAPENTIN [Concomitant]
  8. TORSEMIDE [Concomitant]

REACTIONS (5)
  - AGITATION [None]
  - COGNITIVE DETERIORATION [None]
  - CONDITION AGGRAVATED [None]
  - ENCEPHALOPATHY [None]
  - WEIGHT INCREASED [None]
